FAERS Safety Report 14721014 (Version 2)
Quarter: 2018Q2

REPORT INFORMATION
  Report Type: Spontaneous
  Country: US (occurrence: US)
  Receive Date: 20180405
  Receipt Date: 20180517
  Transmission Date: 20180711
  Serious: No
  Sender: FDA-Public Use
  Company Number: US-JNJFOC-20180333579

PATIENT
  Sex: Male
  Weight: 103.42 kg

DRUGS (1)
  1. INVOKANA [Suspect]
     Active Substance: CANAGLIFLOZIN
     Indication: TYPE 2 DIABETES MELLITUS
     Dosage: BEFORE FIRST MEAL OF THE DAY
     Route: 048

REACTIONS (2)
  - Product packaging quantity issue [Unknown]
  - Abnormal loss of weight [Unknown]
